FAERS Safety Report 9002581 (Version 3)
Quarter: 2013Q1

REPORT INFORMATION
  Report Type: Spontaneous
  Country: BR (occurrence: BR)
  Receive Date: 20130107
  Receipt Date: 20130308
  Transmission Date: 20140127
  Serious: Yes (Other)
  Sender: FDA-Public Use
  Company Number: BR-PFIZER INC-2013002446

PATIENT
  Sex: Female

DRUGS (5)
  1. PRISTIQ [Suspect]
     Indication: PANIC DISORDER
     Dosage: UNK
     Route: 048
  2. PRISTIQ [Suspect]
     Indication: PANIC ATTACK
     Dosage: 50 MG STRENGTH, UNK
     Route: 048
  3. PRISTIQ [Suspect]
     Dosage: 100 MG STRENGTH, UNK
     Route: 048
  4. PRISTIQ [Suspect]
     Dosage: 2 TABLETS OF 50 MG, DAILY
     Route: 048
  5. OLCADIL [Concomitant]
     Indication: PANIC ATTACK
     Dosage: 2 MG, 1X/DAY

REACTIONS (6)
  - Off label use [Not Recovered/Not Resolved]
  - Allergy to chemicals [Recovered/Resolved]
  - Nausea [Recovered/Resolved]
  - Pruritus [Recovered/Resolved]
  - Hypersensitivity [Unknown]
  - Skin plaque [Recovered/Resolved]
